FAERS Safety Report 8975319 (Version 1)
Quarter: 2012Q4

REPORT INFORMATION
  Report Type: 
  Country: US (occurrence: US)
  Receive Date: 20121219
  Receipt Date: 20121219
  Transmission Date: 20130627
  Serious: No
  Sender: FDA-Public Use
  Company Number: US-AMGEN-USASP2012057437

PATIENT
  Sex: Female
  Weight: 52.15 kg

DRUGS (5)
  1. PROLIA [Suspect]
     Indication: OSTEOPOROSIS POSTMENOPAUSAL
     Dosage: 60 mg, q6mo
     Route: 058
     Dates: start: 20111129
  2. MEDROL [Concomitant]
     Indication: POLYMYALGIA RHEUMATICA
     Dosage: 4 mg, UNK
     Route: 048
     Dates: start: 2012
  3. MIDODRINE [Concomitant]
     Indication: OSTEOPOROSIS
     Dosage: UNK
     Dates: start: 2012
  4. CALCIUM [Concomitant]
     Indication: OSTEOPOROSIS
     Dosage: 1500 mg, qd
     Dates: start: 2012
  5. D3 [Concomitant]
     Indication: OSTEOPOROSIS
     Dosage: 2000 IU, qd
     Dates: start: 2012

REACTIONS (7)
  - Pain [Not Recovered/Not Resolved]
  - Arthralgia [Not Recovered/Not Resolved]
  - Osteoarthritis [Unknown]
  - Polyarthritis [Unknown]
  - Bone pain [Not Recovered/Not Resolved]
  - Myalgia [Not Recovered/Not Resolved]
  - Pain in extremity [Not Recovered/Not Resolved]
